FAERS Safety Report 12309316 (Version 1)
Quarter: 2016Q2

REPORT INFORMATION
  Report Type: Spontaneous
  Country: US (occurrence: None)
  Receive Date: 20160426
  Receipt Date: 20160426
  Transmission Date: 20160815
  Serious: Yes (Hospitalization, Other)
  Sender: FDA-Public Use
  Company Number: None

PATIENT
  Age: 65 Year
  Sex: Female
  Weight: 74.84 kg

DRUGS (5)
  1. LIPITOR [Concomitant]
     Active Substance: ATORVASTATIN CALCIUM
  2. TAMOXIFEN [Concomitant]
     Active Substance: TAMOXIFEN
  3. ZOMETA [Suspect]
     Active Substance: ZOLEDRONIC ACID
     Indication: PROPHYLAXIS
     Dosage: INTO A VEIN
     Dates: start: 20150227, end: 20150829
  4. LISINOPRIL. [Concomitant]
     Active Substance: LISINOPRIL
  5. PAXIL [Concomitant]
     Active Substance: PAROXETINE HYDROCHLORIDE

REACTIONS (7)
  - Arthralgia [None]
  - Atrial fibrillation [None]
  - Back pain [None]
  - Pain in extremity [None]
  - Palpitations [None]
  - Myalgia [None]
  - Bone pain [None]
